FAERS Safety Report 11613144 (Version 3)
Quarter: 2016Q3

REPORT INFORMATION
  Report Type: Spontaneous
  Country: US (occurrence: US)
  Receive Date: 20151008
  Receipt Date: 20160921
  Transmission Date: 20161109
  Serious: Yes (Hospitalization, Other)
  Sender: FDA-Public Use
  Company Number: US-JNJFOC-20150902815

PATIENT
  Age: 40 Year
  Sex: Female

DRUGS (6)
  1. XARELTO [Suspect]
     Active Substance: RIVAROXABAN
     Indication: SYSTEMIC LUPUS ERYTHEMATOSUS
     Route: 048
     Dates: start: 201306, end: 201309
  2. XARELTO [Suspect]
     Active Substance: RIVAROXABAN
     Indication: SYSTEMIC LUPUS ERYTHEMATOSUS
     Route: 048
     Dates: start: 20140119, end: 20150527
  3. XARELTO [Suspect]
     Active Substance: RIVAROXABAN
     Indication: VITAMIN K DEFICIENCY
     Route: 048
     Dates: start: 201306, end: 201309
  4. XARELTO [Suspect]
     Active Substance: RIVAROXABAN
     Indication: THROMBOSIS
     Route: 048
     Dates: start: 20140119, end: 20150527
  5. XARELTO [Suspect]
     Active Substance: RIVAROXABAN
     Indication: THROMBOSIS
     Route: 048
     Dates: start: 201306, end: 201309
  6. XARELTO [Suspect]
     Active Substance: RIVAROXABAN
     Indication: VITAMIN K DEFICIENCY
     Route: 048
     Dates: start: 20140119, end: 20150527

REACTIONS (2)
  - Haematemesis [Unknown]
  - Haemorrhage [Unknown]

NARRATIVE: CASE EVENT DATE: 20140907
